FAERS Safety Report 11183658 (Version 6)
Quarter: 2015Q4

REPORT INFORMATION
  Report Type: Spontaneous
  Country: JP (occurrence: JP)
  Receive Date: 20150612
  Receipt Date: 20151015
  Transmission Date: 20160304
  Serious: Yes (Life-Threatening)
  Sender: FDA-Public Use
  Company Number: JP-ASTRAZENECA-2015SE55598

PATIENT
  Age: 86 Year
  Sex: Female
  Weight: 40 kg

DRUGS (7)
  1. FORXIGA [Suspect]
     Active Substance: DAPAGLIFLOZIN
     Indication: TYPE 2 DIABETES MELLITUS
     Route: 048
     Dates: start: 20150530, end: 20150602
  2. FAMOTIDINE. [Concomitant]
     Active Substance: FAMOTIDINE
     Route: 048
     Dates: end: 20150601
  3. JANUVIA [Concomitant]
     Active Substance: SITAGLIPTIN PHOSPHATE
     Indication: TYPE 2 DIABETES MELLITUS
     Route: 048
     Dates: end: 20150602
  4. PRAVASTATIN [Concomitant]
     Active Substance: PRAVASTATIN\PRAVASTATIN SODIUM
     Indication: DYSLIPIDAEMIA
     Route: 048
     Dates: end: 20150601
  5. GLIMEPIRIDE. [Concomitant]
     Active Substance: GLIMEPIRIDE
     Route: 048
     Dates: end: 20150529
  6. SELPHAMIN [Concomitant]
     Indication: LACUNAR INFARCTION
     Route: 048
     Dates: end: 20150602
  7. ACTOS [Concomitant]
     Active Substance: PIOGLITAZONE HYDROCHLORIDE
     Route: 048
     Dates: end: 20150529

REACTIONS (12)
  - Vomiting [Unknown]
  - Decreased activity [Unknown]
  - Fluid intake reduced [Unknown]
  - Urinary tract infection [Recovered/Resolved]
  - Vascular stenosis [Unknown]
  - Dehydration [Recovered/Resolved]
  - Appetite disorder [Recovering/Resolving]
  - Cognitive disorder [Unknown]
  - Mallory-Weiss syndrome [Unknown]
  - Acute myocardial infarction [Recovered/Resolved]
  - Diabetic ketoacidosis [Recovered/Resolved]
  - Gastrooesophageal reflux disease [Unknown]

NARRATIVE: CASE EVENT DATE: 20150531
